FAERS Safety Report 5498522-8 (Version None)
Quarter: 2007Q4

REPORT INFORMATION
  Report Type: 
  Country: None (occurrence: None)
  Receive Date: 20071026
  Receipt Date: 20071016
  Transmission Date: 20080405
  Serious: Yes (Other)
  Sender: FDA-Public Use
  Company Number: PHEH2007US13726

PATIENT
  Sex: Male

DRUGS (2)
  1. LOTREL [Suspect]
     Indication: HYPERTENSION
     Route: 049
  2. HYDROCHLOROTHIAZIDE [Suspect]
     Indication: HYPERTENSION
     Dosage: 25 MG, UNK

REACTIONS (1)
  - NEURITIS [None]
